FAERS Safety Report 5846627-1 (Version None)
Quarter: 2008Q3

REPORT INFORMATION
  Report Type: 
  Country: None (occurrence: None)
  Receive Date: 20080815
  Receipt Date: 20080812
  Transmission Date: 20090109
  Serious: Yes (Other)
  Sender: FDA-Public Use
  Company Number: A0742215A

PATIENT
  Age: 42 Year
  Sex: Female

DRUGS (4)
  1. LAMICTAL [Suspect]
     Indication: BIPOLAR DISORDER
     Dosage: 50MG PER DAY
     Route: 048
     Dates: start: 20050801, end: 20080501
  2. ASPIRIN [Concomitant]
  3. IBUPROFEN [Concomitant]
  4. LUNESTA [Concomitant]

REACTIONS (8)
  - EYE SWELLING [None]
  - GASTROINTESTINAL FUNGAL INFECTION [None]
  - LIP SWELLING [None]
  - MULTIPLE ALLERGIES [None]
  - MULTIPLE SCLEROSIS [None]
  - QUALITY OF LIFE DECREASED [None]
  - SENSATION OF FOREIGN BODY [None]
  - URTICARIA [None]
